FAERS Safety Report 9266938 (Version 2)
Quarter: 2013Q2

REPORT INFORMATION
  Report Type: Spontaneous
  Country: US (occurrence: US)
  Receive Date: 20130502
  Receipt Date: 20130517
  Transmission Date: 20140414
  Serious: No
  Sender: FDA-Public Use
  Company Number: US-PFIZER INC-2013132721

PATIENT
  Sex: Female

DRUGS (1)
  1. EFFEXOR XR [Suspect]
     Dosage: UNK
     Dates: start: 20100615, end: 20130415

REACTIONS (6)
  - Drug withdrawal syndrome [Unknown]
  - Malaise [Unknown]
  - Feeling abnormal [Unknown]
  - Impaired driving ability [Unknown]
  - Weight increased [Unknown]
  - Influenza like illness [Unknown]
